FAERS Safety Report 7110992-8 (Version None)
Quarter: 2010Q4

REPORT INFORMATION
  Report Type: 
  Country: None (occurrence: None)
  Receive Date: 20101108
  Receipt Date: 20101029
  Transmission Date: 20110411
  Serious: Yes (Other)
  Sender: FDA-Public Use
  Company Number: 2010SP057651

PATIENT
  Age: 64 Year
  Sex: Female
  Weight: 66.9056 kg

DRUGS (3)
  1. ALBUTEROL [Suspect]
     Indication: PRODUCT USED FOR UNKNOWN INDICATION
     Dates: start: 20100929
  2. AMPICILLIN [Concomitant]
  3. MULTI-VITAMINS [Concomitant]

REACTIONS (3)
  - BLOOD PRESSURE SYSTOLIC INCREASED [None]
  - HEART RATE DECREASED [None]
  - HEART RATE INCREASED [None]
